FAERS Safety Report 5133723-X (Version None)
Quarter: 2007Q1

REPORT INFORMATION
  Report Type: 
  Country: None (occurrence: None)
  Receive Date: 20061024
  Receipt Date: 20061017
  Transmission Date: 20070707
  Serious: Yes (Hospitalization)
  Sender: FDA-Public Use
  Company Number: DE-ROCHE-467799

PATIENT
  Age: 48 Year
  Sex: Male

DRUGS (2)
  1. ROACCUTANE [Suspect]
     Indication: DRUG USE FOR UNKNOWN INDICATION
     Route: 065
     Dates: start: 20040615
  2. TETANUS IMMUNE GLOBULIN [Suspect]
     Indication: TETANUS IMMUNISATION
     Dosage: REPORTED AS TETANUS SHOT/IMMUNISATION.
     Route: 065

REACTIONS (5)
  - AMNESIA [None]
  - DRUG INTERACTION [None]
  - FALL [None]
  - HEAD INJURY [None]
  - MUSCLE SPASMS [None]
